FAERS Safety Report 8509602-4 (Version None)
Quarter: 2012Q3

REPORT INFORMATION
  Report Type: 
  Country: None (occurrence: None)
  Receive Date: 20120713
  Receipt Date: 20120704
  Transmission Date: 20120928
  Serious: Yes (Other)
  Sender: FDA-Public Use
  Company Number: FR-ASTRAZENECA-2012SE46024

PATIENT
  Sex: Female

DRUGS (2)
  1. QUETIAPINE FUMARATE [Suspect]
     Route: 048
  2. IRESSA [Suspect]
     Route: 048
     Dates: start: 20111101

REACTIONS (1)
  - CENTRAL NERVOUS SYSTEM LESION [None]
